FAERS Safety Report 5276826-1 (Version None)
Quarter: 2007Q1

REPORT INFORMATION
  Report Type: 
  Country: None (occurrence: None)
  Receive Date: 20070327
  Receipt Date: 20070322
  Transmission Date: 20070707
  Serious: Yes (Hospitalization, Other)
  Sender: FDA-Public Use
  Company Number: US-BRISTOL-MYERS SQUIBB COMPANY-13724448

PATIENT
  Age: 83 Year
  Sex: Male
  Weight: 119 kg

DRUGS (11)
  1. COUMADIN [Suspect]
     Indication: ATRIAL FIBRILLATION
     Dosage: 11-06-02-07 DOSE=1MGX4D/WK .5 MGX3D/WK 02-07 6 MG/WK INCREASED 03-15-07 7MG/WK 03-22-07 8.5 MG/WK
     Dates: start: 20061001
  2. PLAVIX [Suspect]
     Dates: start: 20050201
  3. DIGITEK [Concomitant]
     Dates: end: 20070101
  4. VYTORIN [Concomitant]
  5. SYNTHROID [Concomitant]
  6. TYLENOL [Concomitant]
  7. TRIAMTERENE [Concomitant]
  8. AVODART [Concomitant]
  9. TOPROL-XL [Concomitant]
  10. ASPIRIN [Concomitant]
  11. NEXIUM [Concomitant]

REACTIONS (4)
  - DRUG INEFFECTIVE [None]
  - INTERNATIONAL NORMALISED RATIO DECREASED [None]
  - THROMBOSIS [None]
  - TRANSIENT ISCHAEMIC ATTACK [None]
